FAERS Safety Report 16196805 (Version 1)
Quarter: 2019Q2

REPORT INFORMATION
  Report Type: Spontaneous
  Country: US (occurrence: US)
  Receive Date: 20190412
  Receipt Date: 20190412
  Transmission Date: 20190711
  Serious: No
  Sender: FDA-Public Use
  Company Number: None

PATIENT
  Sex: Female
  Weight: 68.04 kg

DRUGS (10)
  1. ADVAIR HFA [Concomitant]
     Active Substance: FLUTICASONE PROPIONATE\SALMETEROL XINAFOATE
  2. ALOXI [Concomitant]
     Active Substance: PALONOSETRON HYDROCHLORIDE
  3. FAMOTIDINE. [Concomitant]
     Active Substance: FAMOTIDINE
  4. METOPROLOL. [Concomitant]
     Active Substance: METOPROLOL
  5. MILK OF MAGNESIA [Concomitant]
     Active Substance: MAGNESIUM HYDROXIDE
  6. ATORVASTATIN [Concomitant]
     Active Substance: ATORVASTATIN
  7. OXALIPLATIN. [Concomitant]
     Active Substance: OXALIPLATIN
  8. CAPECITABINE. [Suspect]
     Active Substance: CAPECITABINE
     Indication: COLON CANCER
     Dosage: ?          OTHER FREQUENCY:BID 1WK ON 1WK OFF;?
     Route: 048
     Dates: start: 20181119
  9. VENTOLIN [Concomitant]
     Active Substance: ALBUTEROL SULFATE
  10. DEXAMETHASONE. [Concomitant]
     Active Substance: DEXAMETHASONE

REACTIONS (4)
  - Haematochezia [None]
  - Arthralgia [None]
  - Constipation [None]
  - Myalgia [None]
